FAERS Safety Report 6284303-4 (Version None)
Quarter: 2009Q3

REPORT INFORMATION
  Report Type: 
  Country: None (occurrence: None)
  Receive Date: 20090727
  Receipt Date: 20090717
  Transmission Date: 20100115
  Serious: Yes (Other)
  Sender: FDA-Public Use
  Company Number: DE-SOLVAY-00309003986

PATIENT
  Age: 68 Year
  Sex: Female

DRUGS (4)
  1. DICLOFENAC 75 ID [Concomitant]
     Indication: DRUG USE FOR UNKNOWN INDICATION
     Dosage: DAILY DOSE:  1-2
     Route: 065
     Dates: start: 20000101
  2. CREON [Suspect]
     Indication: PANCREATIC INSUFFICIENCY
     Dosage: DAILY DOSE:  75000 UNITS, AS USED 25000 UNITS, FREQUENCY THREE TIMES A DAY
     Route: 065
  3. BISOPROLOL COMP [Concomitant]
     Indication: DRUG USE FOR UNKNOWN INDICATION
     Dosage: DAILY DOSE: .5 DOSAGE FORM; FREQUENCY: ONCE A DAY
     Route: 065
  4. CETRIVIZIN [Concomitant]
     Indication: DRUG USE FOR UNKNOWN INDICATION
     Dosage: DAILY DOSE: 1 DOSAGE FORM, FREQUENCY ONCE A DAY
     Route: 065

REACTIONS (2)
  - BLOOD IMMUNOGLOBULIN E INCREASED [None]
  - HYPERSENSITIVITY [None]
